FAERS Safety Report 5924617-8 (Version None)
Quarter: 2008Q4

REPORT INFORMATION
  Report Type: 
  Country: None (occurrence: None)
  Receive Date: 20081016
  Receipt Date: 20081003
  Transmission Date: 20090506
  Serious: Yes (Other)
  Sender: FDA-Public Use
  Company Number: 2008S1015290

PATIENT
  Age: 23 Year
  Sex: Female
  Weight: 74.8435 kg

DRUGS (4)
  1. AMNESTEEM [Suspect]
     Indication: ACNE
     Dosage: 40 MG; DAILY; ORAL
     Route: 048
     Dates: start: 20080522, end: 20080602
  2. AMNESTEEM [Suspect]
     Indication: ACNE
     Dosage: 40 MG; DAILY; ORAL
     Route: 048
     Dates: start: 20080610, end: 20080805
  3. AMNESTEEM [Suspect]
     Indication: ACNE
     Dosage: 20 MG; DAILY; ORAL
     Route: 048
     Dates: start: 20080622, end: 20080805
  4. ORAL CONTRACEPTIVE NOS [Concomitant]

REACTIONS (2)
  - ABNORMAL DREAMS [None]
  - ANXIETY [None]
